FAERS Safety Report 9795302 (Version 2)
Quarter: 2014Q1

REPORT INFORMATION
  Report Type: Report from Study
  Country: US (occurrence: US)
  Receive Date: 20140103
  Receipt Date: 20140117
  Transmission Date: 20141002
  Serious: Yes (Hospitalization, Other)
  Sender: FDA-Public Use
  Company Number: US-BRISTOL-MYERS SQUIBB COMPANY-19947845

PATIENT
  Sex: Male
  Weight: 84.6 kg

DRUGS (1)
  1. IPILIMUMAB [Suspect]
     Indication: METASTATIC MALIGNANT MELANOMA
     Dosage: LAST DOSE GIVEN ON: 09-DEC-2013

REACTIONS (2)
  - Gastric haemorrhage [Unknown]
  - Convulsion [Unknown]
